FAERS Safety Report 11500146 (Version 1)
Quarter: 2015Q3

REPORT INFORMATION
  Report Type: Spontaneous
  Country: US (occurrence: None)
  Receive Date: 20150911
  Receipt Date: 20150911
  Transmission Date: 20151125
  Serious: Yes (Other)
  Sender: FDA-Public Use
  Company Number: None

PATIENT
  Sex: Female
  Weight: 101 kg

DRUGS (1)
  1. LEVERITACETAM ER 500 MG [Suspect]
     Active Substance: LEVETIRACETAM
     Dosage: XR

REACTIONS (1)
  - Seizure [None]
